FAERS Safety Report 5549469-X (Version None)
Quarter: 2007Q4

REPORT INFORMATION
  Report Type: 
  Country: None (occurrence: None)
  Receive Date: 20071212
  Receipt Date: 20071130
  Transmission Date: 20080405
  Serious: Yes (Hospitalization)
  Sender: FDA-Public Use
  Company Number: PHBS2007TR20432

PATIENT
  Age: 60 Year
  Sex: Male

DRUGS (2)
  1. IMATINIB [Suspect]
     Indication: GASTROINTESTINAL STROMAL TUMOUR
     Dosage: 400 MG/DAY
     Route: 065
  2. IMATINIB [Suspect]
     Dosage: 400 MG/DAY
     Route: 065

REACTIONS (10)
  - GASTRECTOMY [None]
  - GASTRIC CANCER [None]
  - GASTRO-JEJUNOSTOMY [None]
  - HAEMATEMESIS [None]
  - MALIGNANT TUMOUR EXCISION [None]
  - METASTASES TO LIVER [None]
  - NAUSEA [None]
  - PROSTATE CANCER [None]
  - PROSTATIC SPECIFIC ANTIGEN INCREASED [None]
  - VOMITING [None]
